FAERS Safety Report 23093106 (Version 1)
Quarter: 2023Q4

REPORT INFORMATION
  Report Type: Spontaneous
  Country: US (occurrence: US)
  Receive Date: 20231022
  Receipt Date: 20231022
  Transmission Date: 20240110
  Serious: No
  Sender: FDA-Public Use
  Company Number: US-BRISTOL-MYERS SQUIBB COMPANY-2023-148190

PATIENT
  Age: 64 Year
  Sex: Female

DRUGS (1)
  1. POMALYST [Suspect]
     Active Substance: POMALIDOMIDE
     Indication: Product used for unknown indication
     Dosage: FREQUENCY: 14 DAYS ON THEN 14 DAYS OFF
     Route: 048

REACTIONS (4)
  - Constipation [Unknown]
  - Memory impairment [Unknown]
  - Defaecation urgency [Unknown]
  - Off label use [Unknown]
